FAERS Safety Report 20500368 (Version 1)
Quarter: 2022Q1

REPORT INFORMATION
  Report Type: Spontaneous
  Country: US (occurrence: None)
  Receive Date: 20220218
  Receipt Date: 20220218
  Transmission Date: 20220423
  Serious: No
  Sender: FDA-Public Use
  Company Number: None

PATIENT
  Age: 45 Year
  Sex: Female
  Weight: 58.5 kg

DRUGS (1)
  1. JET-ASLEEP DOUBLE STRENGTH NIGHT TIME SLEEP AID [Suspect]
     Active Substance: DIPHENHYDRAMINE HYDROCHLORIDE
     Indication: Headache
     Dosage: OTHER QUANTITY : 1 TABLET(S);?FREQUENCY : AT BEDTIME;?
     Route: 048
     Dates: start: 20220216, end: 20220218

REACTIONS (4)
  - Migraine [None]
  - Drug ineffective [None]
  - Suspected product quality issue [None]
  - Headache [None]

NARRATIVE: CASE EVENT DATE: 20220216
